FAERS Safety Report 8887332 (Version 3)
Quarter: 2013Q1

REPORT INFORMATION
  Report Type: Spontaneous
  Country: US (occurrence: US)
  Receive Date: 20121101
  Receipt Date: 20130109
  Transmission Date: 20140127
  Serious: Yes (Other)
  Sender: FDA-Public Use
  Company Number: US-PFIZER INC-2012272105

PATIENT
  Age: 44 Year
  Sex: Male
  Weight: 100.68 kg

DRUGS (5)
  1. CHANTIX [Suspect]
     Indication: SMOKING CESSATION THERAPY
     Dosage: 0.5 MG, DAILY
     Dates: start: 20121019, end: 201210
  2. CHANTIX [Suspect]
     Dosage: UNK
     Dates: start: 201210
  3. LISINOPRIL W/HYDROCHLOROTHIAZIDE [Concomitant]
     Indication: HYPERTENSION
     Dosage: 20/25 MG, DAILY
  4. AMLODIPINE/ATORVASTATIN [Concomitant]
     Indication: BLOOD CHOLESTEROL INCREASED
     Dosage: 5/10 MG, DAILY
  5. LOTRIMIN ULTRA [Concomitant]
     Indication: TINEA CRURIS
     Dosage: UNK, 2X/DAY

REACTIONS (5)
  - Rash [Not Recovered/Not Resolved]
  - Erythema [Not Recovered/Not Resolved]
  - Pruritus [Recovered/Resolved]
  - Skin disorder [Not Recovered/Not Resolved]
  - Rash erythematous [Not Recovered/Not Resolved]
